FAERS Safety Report 13229658 (Version 1)
Quarter: 2017Q1

REPORT INFORMATION
  Report Type: Spontaneous
  Country: US (occurrence: US)
  Receive Date: 20170213
  Receipt Date: 20170213
  Transmission Date: 20170428
  Serious: Yes (Other)
  Sender: FDA-Public Use
  Company Number: None

PATIENT
  Sex: Female
  Weight: 46.85 kg

DRUGS (1)
  1. OXYCODONE ER 80 MG TABLET [Suspect]
     Active Substance: OXYCODONE
     Indication: PAIN
     Route: 048
     Dates: start: 20051112, end: 20060329

REACTIONS (2)
  - Gastrointestinal disorder [None]
  - Abdominal discomfort [None]

NARRATIVE: CASE EVENT DATE: 2006
